FAERS Safety Report 6773133-2 (Version None)
Quarter: 2010Q2

REPORT INFORMATION
  Report Type: 
  Country: None (occurrence: None)
  Receive Date: 20100616
  Receipt Date: 20100107
  Transmission Date: 20101027
  Serious: No
  Sender: FDA-Public Use
  Company Number: US-TYCO HEALTHCARE/MALLINCKRODT-T201000124

PATIENT
  Age: 29 Year
  Sex: Female

DRUGS (3)
  1. ULTRATAG [Suspect]
     Indication: RADIOISOTOPE SCAN
     Dosage: UNK
     Dates: start: 20100107, end: 20100107
  2. ULTRA-TECHNEKOW [Concomitant]
     Dosage: 30 MCI, SINGLE
     Dates: start: 20100107, end: 20100107
  3. HEPARIN [Concomitant]
     Dosage: 0.2 ML, UNK
     Dates: start: 20100107, end: 20100107

REACTIONS (1)
  - DRUG INEFFECTIVE [None]
